FAERS Safety Report 23081248 (Version 1)
Quarter: 2023Q4

REPORT INFORMATION
  Report Type: Report from Study
  Country: CA (occurrence: CA)
  Receive Date: 20231018
  Receipt Date: 20231018
  Transmission Date: 20240109
  Serious: Yes (Other)
  Sender: FDA-Public Use
  Company Number: CA-SANDOZ-SDZ2023CA037832

PATIENT
  Sex: Female

DRUGS (1)
  1. FULVESTRANT [Suspect]
     Active Substance: FULVESTRANT
     Indication: Product used for unknown indication
     Dosage: 500 MG (2 X 250MG/5ML) (0, 14, 28 DAYS)
     Route: 065
     Dates: start: 20230928

REACTIONS (3)
  - Mental impairment [Unknown]
  - Oedema peripheral [Unknown]
  - Nausea [Unknown]
